FAERS Safety Report 25478541 (Version 1)
Quarter: 2025Q2

REPORT INFORMATION
  Report Type: Report from Study
  Country: CO (occurrence: CO)
  Receive Date: 20250625
  Receipt Date: 20250625
  Transmission Date: 20250717
  Serious: Yes (Hospitalization, Other)
  Sender: UCB
  Company Number: CO-UCBSA-2025037477

PATIENT
  Age: 31 Year
  Sex: Female

DRUGS (3)
  1. BRIVARACETAM [Suspect]
     Active Substance: BRIVARACETAM
     Indication: Epilepsy
     Dosage: 100 MILLIGRAM, 2X/DAY (BID)
     Route: 048
     Dates: start: 20250613, end: 20250613
  2. LACOSAMIDE [Concomitant]
     Active Substance: LACOSAMIDE
     Indication: Epilepsy
     Dosage: 50 MILLIGRAM, 2X/DAY (BID)
  3. LORATADINE [Concomitant]
     Active Substance: LORATADINE
     Indication: Product used for unknown indication

REACTIONS (4)
  - Syncope [Recovered/Resolved]
  - Dissociative disorder [Recovered/Resolved]
  - Vomiting [Recovered/Resolved]
  - Flushing [Not Recovered/Not Resolved]

NARRATIVE: CASE EVENT DATE: 20250613
